FAERS Safety Report 7461114-5 (Version None)
Quarter: 2011Q2

REPORT INFORMATION
  Report Type: 
  Country: None (occurrence: None)
  Receive Date: 20110505
  Receipt Date: 20090813
  Transmission Date: 20111010
  Serious: Yes (Other)
  Sender: FDA-Public Use
  Company Number: DE-GENENTECH-318119

PATIENT
  Age: 60 Year
  Sex: Female

DRUGS (1)
  1. LUCENTIS [Suspect]
     Indication: AGE-RELATED MACULAR DEGENERATION
     Dosage: UNK
     Route: 031
     Dates: start: 20080715

REACTIONS (5)
  - RETINAL OEDEMA [None]
  - VISUAL ACUITY REDUCED [None]
  - CONJUNCTIVITIS [None]
  - METAMORPHOPSIA [None]
  - CATARACT [None]
